FAERS Safety Report 5960691-0 (Version None)
Quarter: 2008Q4

REPORT INFORMATION
  Report Type: 
  Country: None (occurrence: None)
  Receive Date: 20081120
  Receipt Date: 20081111
  Transmission Date: 20090506
  Serious: Yes (Other)
  Sender: FDA-Public Use
  Company Number: BR-PFIZER INC-2008055501

PATIENT
  Sex: Female
  Weight: 65 kg

DRUGS (6)
  1. LIPITOR [Suspect]
     Indication: DYSLIPIDAEMIA
     Route: 048
     Dates: start: 20010401
  2. CALCIUM [Concomitant]
     Route: 048
  3. CENTRUM [Concomitant]
     Route: 048
  4. FOSAMAX [Concomitant]
     Route: 048
  5. ZOLOFT [Concomitant]
     Dates: start: 20001206
  6. HOMEOPATHIC PREPARATION [Concomitant]
     Dates: start: 20020501, end: 20080601

REACTIONS (11)
  - ARTHRALGIA [None]
  - BACK PAIN [None]
  - BLOOD CHOLESTEROL INCREASED [None]
  - LOW DENSITY LIPOPROTEIN INCREASED [None]
  - MUSCULOSKELETAL PAIN [None]
  - MYALGIA [None]
  - NERVOUSNESS [None]
  - OSTEOPOROSIS [None]
  - PAIN IN EXTREMITY [None]
  - SCOLIOSIS [None]
  - TENDONITIS [None]
